FAERS Safety Report 4863379-2 (Version None)
Quarter: 2005Q4

REPORT INFORMATION
  Report Type: 
  Country: None (occurrence: None)
  Receive Date: 20051222
  Receipt Date: 20041108
  Transmission Date: 20060501
  Serious: No
  Sender: FDA-Public Use
  Company Number: US-GLAXOSMITHKLINE-A0533085A

PATIENT
  Age: 67 Year
  Sex: Female

DRUGS (1)
  1. FLONASE [Suspect]
     Dosage: 50MCG PER DAY
     Route: 045
     Dates: start: 20020101

REACTIONS (1)
  - ANOSMIA [None]
